FAERS Safety Report 5698678-8 (Version None)
Quarter: 2008Q2

REPORT INFORMATION
  Report Type: 
  Country: None (occurrence: None)
  Receive Date: 20080408
  Receipt Date: 20070216
  Transmission Date: 20081010
  Serious: No
  Sender: FDA-Public Use
  Company Number: US-BAYER-US-2007-005858

PATIENT
  Age: 64 Year
  Sex: Female
  Weight: 64 kg

DRUGS (4)
  1. CLIMARA [Suspect]
     Indication: HORMONE REPLACEMENT THERAPY
     Route: 062
     Dates: start: 19970101
  2. VITAMIN B-12 [Concomitant]
     Route: 050
  3. SYNTHROID [Concomitant]
  4. NEXIUM [Concomitant]

REACTIONS (4)
  - AXILLARY PAIN [None]
  - BREAST PAIN [None]
  - DYSPEPSIA [None]
  - GASTROOESOPHAGEAL REFLUX DISEASE [None]
